FAERS Safety Report 11851833 (Version 1)
Quarter: 2015Q4

REPORT INFORMATION
  Report Type: Spontaneous
  Country: US (occurrence: US)
  Receive Date: 20151218
  Receipt Date: 20151218
  Transmission Date: 20160305
  Serious: No
  Sender: FDA-Public Use
  Company Number: US-HORIZON-PRE-0239-2015

PATIENT
  Age: 49 Year
  Sex: Male

DRUGS (8)
  1. RAYOS [Suspect]
     Active Substance: PREDNISONE
     Indication: RHEUMATOID ARTHRITIS
     Dosage: 10 MG DAILY
     Route: 048
     Dates: start: 2015
  2. OMEPRAZOLE. [Concomitant]
     Active Substance: OMEPRAZOLE
  3. BABY ASPIRIN [Concomitant]
     Active Substance: ASPIRIN
  4. METHOTREXATE [Concomitant]
     Active Substance: METHOTREXATE
  5. HUMIRA [Concomitant]
     Active Substance: ADALIMUMAB
  6. CELEBREX [Concomitant]
     Active Substance: CELECOXIB
  7. HYDROCODONE [Concomitant]
     Active Substance: HYDROCODONE
  8. FOLIC ACID. [Concomitant]
     Active Substance: FOLIC ACID

REACTIONS (1)
  - Drug dose omission [Not Recovered/Not Resolved]
